FAERS Safety Report 4940070-5 (Version None)
Quarter: 2006Q1

REPORT INFORMATION
  Report Type: 
  Country: None (occurrence: None)
  Receive Date: 20060310
  Receipt Date: 20051130
  Transmission Date: 20060701
  Serious: Yes (Other)
  Sender: FDA-Public Use
  Company Number: US-ROCHE-427205

PATIENT
  Age: 19 Year
  Sex: Female
  Weight: 59 kg

DRUGS (5)
  1. ACCUTANE [Suspect]
     Indication: ACNE
     Route: 048
     Dates: start: 19970615, end: 19970615
  2. ACCUTANE [Suspect]
     Route: 048
     Dates: start: 20000615, end: 20001115
  3. ORTHO TRI-CYCLEN [Concomitant]
  4. LO/OVRAL [Concomitant]
  5. ALBUTEROL [Concomitant]

REACTIONS (6)
  - COLITIS [None]
  - COLITIS ULCERATIVE [None]
  - GASTROINTESTINAL DISORDER [None]
  - INFLAMMATORY BOWEL DISEASE [None]
  - INTESTINAL HAEMORRHAGE [None]
  - IRRITABLE BOWEL SYNDROME [None]
